FAERS Safety Report 11645663 (Version 2)
Quarter: 2015Q4

REPORT INFORMATION
  Report Type: Spontaneous
  Country: US (occurrence: US)
  Receive Date: 20151020
  Receipt Date: 20151113
  Transmission Date: 20160304
  Serious: Yes (Hospitalization, Other)
  Sender: FDA-Public Use
  Company Number: US-ELI_LILLY_AND_COMPANY-US201510004257

PATIENT
  Age: 72 Year
  Sex: Female
  Weight: 48.53 kg

DRUGS (10)
  1. TRAMADOL. [Concomitant]
     Active Substance: TRAMADOL
     Dosage: UNK, UNKNOWN
     Route: 065
  2. VITAMIN B12 [Concomitant]
     Active Substance: CYANOCOBALAMIN
     Dosage: 1000 UG, UNKNOWN
     Route: 065
     Dates: start: 20150922
  3. CALCIUM AND VIT D [Concomitant]
     Active Substance: CALCIUM\VITAMIN D
     Dosage: UNK, UNKNOWN
     Route: 065
  4. OMEGA                              /00661201/ [Concomitant]
     Dosage: UNK, UNKNOWN
     Route: 065
  5. VITAMIIN C [Concomitant]
     Active Substance: ASCORBIC ACID
     Dosage: UNK, UNKNOWN
     Route: 065
  6. FOLIC ACID. [Concomitant]
     Active Substance: FOLIC ACID
     Dosage: 1 MG, UNKNOWN
     Route: 065
     Dates: start: 20150623
  7. ALIMTA [Suspect]
     Active Substance: PEMETREXED DISODIUM
     Indication: NON-SMALL CELL LUNG CANCER
     Dosage: 730 MG, 3/W
     Route: 042
     Dates: start: 20150929, end: 20151007
  8. MULTI VITAMIN [Concomitant]
     Active Substance: VITAMINS
     Dosage: UNK, UNKNOWN
     Route: 065
  9. PROBIOTICS                         /07325001/ [Concomitant]
     Active Substance: BIFIDOBACTERIUM LONGUM\LACTOBACILLUS ACIDOPHILUS\LACTOBACILLUS RHAMNOSUS
     Dosage: UNK, UNKNOWN
     Route: 065
  10. ULORIC [Concomitant]
     Active Substance: FEBUXOSTAT
     Dosage: UNK, UNKNOWN
     Route: 065

REACTIONS (2)
  - Glomerulonephritis rapidly progressive [Recovering/Resolving]
  - Hypersensitivity vasculitis [Recovering/Resolving]
